FAERS Safety Report 5339353-9 (Version None)
Quarter: 2007Q2

REPORT INFORMATION
  Report Type: 
  Country: None (occurrence: None)
  Receive Date: 20070322
  Receipt Date: 20070130
  Transmission Date: 20071010
  Serious: Yes (Other)
  Sender: FDA-Public Use
  Company Number: 200615081BCC

PATIENT
  Age: 70 Year
  Sex: Female
  Weight: 108.8633 kg

DRUGS (10)
  1. ALEVE (CAPLET) [Suspect]
     Indication: BACK PAIN
     Dosage: 440 MG, OM, ORAL
     Route: 048
     Dates: start: 20061218, end: 20061222
  2. VERAPAMIL [Concomitant]
  3. MAXIDEX [Concomitant]
  4. HYTRIN [Concomitant]
  5. QUINAPRIL [Concomitant]
  6. SINGULAIR [Concomitant]
  7. ALBUTEROL [Concomitant]
  8. FLOVENT [Concomitant]
  9. MULTI-VITAMIN [Concomitant]
  10. SEREVENT [Concomitant]

REACTIONS (1)
  - RECTAL HAEMORRHAGE [None]
